FAERS Safety Report 11523481 (Version 1)
Quarter: 2015Q3

REPORT INFORMATION
  Report Type: Spontaneous
  Country: US (occurrence: US)
  Receive Date: 20150903
  Receipt Date: 20150903
  Transmission Date: 20151125
  Serious: No
  Sender: FDA-Public Use
  Company Number: US-ELI_LILLY_AND_COMPANY-US201302003810

PATIENT
  Sex: Female
  Weight: 92.97 kg

DRUGS (7)
  1. CYMBALTA [Suspect]
     Active Substance: DULOXETINE HYDROCHLORIDE
     Indication: FIBROMYALGIA
  2. PRILOSEC [Concomitant]
     Active Substance: OMEPRAZOLE MAGNESIUM
  3. TRAMADOL. [Concomitant]
     Active Substance: TRAMADOL
     Indication: PAIN
     Dosage: 100 MG, TID
  4. CELEBREX [Concomitant]
     Active Substance: CELECOXIB
     Indication: FIBROMYALGIA
  5. IBUPROFEN. [Concomitant]
     Active Substance: IBUPROFEN
     Indication: PAIN
     Dosage: 800 MG, TID
     Dates: start: 2002
  6. CLARIPEN [Concomitant]
  7. LYRICA [Concomitant]
     Active Substance: PREGABALIN
     Indication: FIBROMYALGIA
     Dosage: 150 MG, BID
     Dates: start: 2012, end: 201212

REACTIONS (2)
  - Drug ineffective [Recovered/Resolved]
  - Exostosis [Unknown]
